FAERS Safety Report 9395489 (Version 1)
Quarter: 2013Q3

REPORT INFORMATION
  Report Type: Spontaneous
  Country: US (occurrence: US)
  Receive Date: 20130711
  Receipt Date: 20130711
  Transmission Date: 20140515
  Serious: Yes (Hospitalization, Other)
  Sender: FDA-Public Use
  Company Number: PHHY2012US076556

PATIENT
  Age: 22 Year
  Sex: Female

DRUGS (4)
  1. TOBRAMYCIN [Suspect]
  2. PIPERACILLIN SODIUM W/TAZOBACTAM SODIUM [Concomitant]
  3. CIPROFLOXACIN [Concomitant]
  4. VANCOMYCIN [Concomitant]

REACTIONS (2)
  - HELLP syndrome [Unknown]
  - Maternal exposure during pregnancy [Unknown]
